FAERS Safety Report 20756476 (Version 1)
Quarter: 2022Q2

REPORT INFORMATION
  Report Type: Spontaneous
  Country: SE (occurrence: SE)
  Receive Date: 20220427
  Receipt Date: 20220427
  Transmission Date: 20220721
  Serious: Yes (Other)
  Sender: FDA-Public Use
  Company Number: SE-NOVARTISPH-NVSC2022SE093171

PATIENT

DRUGS (1)
  1. BISOPROLOL [Suspect]
     Active Substance: BISOPROLOL
     Indication: Product used for unknown indication
     Dosage: 1.25 MG
     Route: 065

REACTIONS (8)
  - Fall [Unknown]
  - Amnesia [Unknown]
  - Syncope [Unknown]
  - Ear discomfort [Unknown]
  - Tremor [Unknown]
  - Cold sweat [Unknown]
  - Feeling abnormal [Unknown]
  - Fatigue [Unknown]
